FAERS Safety Report 7931923-4 (Version None)
Quarter: 2011Q4

REPORT INFORMATION
  Report Type: 
  Country: None (occurrence: None)
  Receive Date: 20111121
  Receipt Date: 20111110
  Transmission Date: 20120403
  Serious: Yes (Hospitalization)
  Sender: FDA-Public Use
  Company Number: US-BAYER-2011-011271

PATIENT
  Age: 36 Year
  Sex: Female

DRUGS (4)
  1. YASMIN [Suspect]
     Indication: CONTRACEPTION
     Dosage: UNK
     Dates: start: 20030901, end: 20061101
  2. AVELOX [Concomitant]
     Dosage: 450 MG, UNK
     Dates: start: 20060821
  3. AMOXICILLIN [Concomitant]
     Dosage: 250 MG, UNK
     Dates: start: 20060809
  4. FLUCONAZOLE [Concomitant]
     Dosage: 100 MG, UNK
     Dates: start: 20060825

REACTIONS (5)
  - PAIN [None]
  - DEEP VEIN THROMBOSIS [None]
  - INJURY [None]
  - PAIN IN EXTREMITY [None]
  - MUSCLE SPASMS [None]
